FAERS Safety Report 14364897 (Version 1)
Quarter: 2018Q1

REPORT INFORMATION
  Report Type: Spontaneous
  Country: US (occurrence: US)
  Receive Date: 20180108
  Receipt Date: 20180108
  Transmission Date: 20180509
  Serious: Yes (Hospitalization)
  Sender: FDA-Public Use
  Company Number: US-ROCHE-1947899

PATIENT
  Age: 34 Year
  Sex: Female

DRUGS (2)
  1. ACTIVASE [Suspect]
     Active Substance: ALTEPLASE
     Dosage: BOLUS DOSE ;ONGOING: NO
     Route: 040
     Dates: start: 20170608, end: 20170608
  2. ACTIVASE [Suspect]
     Active Substance: ALTEPLASE
     Indication: ISCHAEMIC STROKE
     Dosage: BOLUS DOSE ;ONGOING: NO
     Route: 042
     Dates: start: 20170608, end: 20170608

REACTIONS (2)
  - Ischaemic stroke [Unknown]
  - Angioedema [Unknown]

NARRATIVE: CASE EVENT DATE: 20170608
